FAERS Safety Report 7727517-6 (Version None)
Quarter: 2011Q3

REPORT INFORMATION
  Report Type: 
  Country: None (occurrence: None)
  Receive Date: 20110902
  Receipt Date: 20110901
  Transmission Date: 20111222
  Serious: No
  Sender: FDA-Public Use
  Company Number: US-PFIZER INC-2011205209

PATIENT
  Sex: Male
  Weight: 81.633 kg

DRUGS (2)
  1. CHANTIX [Suspect]
     Dosage: UNK
     Dates: start: 20110801, end: 20110826
  2. CHANTIX [Suspect]
     Indication: SMOKING CESSATION THERAPY
     Dosage: 0.5 MG, 1X/DAY
     Route: 048
     Dates: start: 20110808, end: 20110801

REACTIONS (4)
  - VOMITING [None]
  - NAUSEA [None]
  - LAZINESS [None]
  - MALAISE [None]
